FAERS Safety Report 22223180 (Version 1)
Quarter: 2023Q2

REPORT INFORMATION
  Report Type: Spontaneous
  Country: US (occurrence: US)
  Receive Date: 20230418
  Receipt Date: 20230418
  Transmission Date: 20230721
  Serious: No
  Sender: FDA-Public Use
  Company Number: US-GLAXOSMITHKLINE-USCH2023016682

PATIENT

DRUGS (2)
  1. ABREVA [Suspect]
     Active Substance: DOCOSANOL
     Indication: Oral herpes
     Dosage: UNK (4-5 TIMES/DAY)
  2. LYSINE [Suspect]
     Active Substance: LYSINE
     Indication: Oral herpes
     Dosage: UNK (2,000-3,000 MG/DAY)

REACTIONS (1)
  - Inappropriate schedule of product administration [Unknown]
